FAERS Safety Report 6407432-0 (Version None)
Quarter: 2009Q4

REPORT INFORMATION
  Report Type: 
  Country: None (occurrence: None)
  Receive Date: 20091020
  Receipt Date: 20091015
  Transmission Date: 20100525
  Serious: Yes (Hospitalization, Disabling, Other)
  Sender: FDA-Public Use
  Company Number: US-MERCK-0905USA02195

PATIENT
  Age: 66 Year
  Sex: Female

DRUGS (3)
  1. FOSAMAX [Suspect]
     Indication: OSTEOPOROSIS
     Route: 048
     Dates: start: 19970107, end: 20010212
  2. FOSAMAX [Suspect]
     Route: 048
     Dates: start: 20050520, end: 20060626
  3. SALSALATE [Concomitant]
     Indication: OSTEOARTHRITIS
     Route: 065
     Dates: start: 19800101, end: 20010901

REACTIONS (17)
  - ACTINOMYCOSIS [None]
  - ANGIOPATHY [None]
  - BLOOD CHOLESTEROL INCREASED [None]
  - DENTAL FISTULA [None]
  - IMPAIRED HEALING [None]
  - JAW DISORDER [None]
  - LOOSE TOOTH [None]
  - LUNG NEOPLASM MALIGNANT [None]
  - MUSCULOSKELETAL DISORDER [None]
  - ORAL INFECTION [None]
  - ORAL PAIN [None]
  - OSTEOMYELITIS [None]
  - OSTEONECROSIS [None]
  - PRECANCEROUS CELLS PRESENT [None]
  - STOMATITIS [None]
  - TOOTH DISORDER [None]
  - TOOTHACHE [None]
